FAERS Safety Report 11985743 (Version 1)
Quarter: 2016Q1

REPORT INFORMATION
  Report Type: Spontaneous
  Country: US (occurrence: US)
  Receive Date: 20160202
  Receipt Date: 20160202
  Transmission Date: 20160526
  Serious: Yes (Other)
  Sender: FDA-Public Use
  Company Number: US-ROCHE-1703309

PATIENT
  Age: 67 Year
  Sex: Female

DRUGS (1)
  1. RITUXAN [Suspect]
     Active Substance: RITUXIMAB
     Indication: RHEUMATOID ARTHRITIS
     Route: 041
     Dates: start: 2009

REACTIONS (3)
  - Cardiomyopathy [Not Recovered/Not Resolved]
  - Rheumatoid arthritis [Recovered/Resolved with Sequelae]
  - Fibromyalgia [Not Recovered/Not Resolved]
